FAERS Safety Report 11186335 (Version 2)
Quarter: 2015Q3

REPORT INFORMATION
  Report Type: Report from Study
  Country: US (occurrence: US)
  Receive Date: 20150612
  Receipt Date: 20150817
  Transmission Date: 20151125
  Serious: Yes (Other)
  Sender: FDA-Public Use
  Company Number: US-GILEAD-2015-0156857

PATIENT
  Age: 55 Year
  Sex: Male

DRUGS (2)
  1. AMBRISENTAN [Suspect]
     Active Substance: AMBRISENTAN
     Indication: PULMONARY ARTERIAL HYPERTENSION
  2. AMBRISENTAN [Suspect]
     Active Substance: AMBRISENTAN
     Indication: PULMONARY HYPERTENSION
     Dosage: 10 MG, QD
     Route: 065
     Dates: start: 20150604

REACTIONS (9)
  - Vomiting [Unknown]
  - Dyspnoea [Unknown]
  - Vision blurred [Unknown]
  - Swelling [Unknown]
  - Arrhythmia [Unknown]
  - Asthenia [Unknown]
  - Bone pain [Unknown]
  - Pulmonary hypertension [Unknown]
  - Nausea [Unknown]
